FAERS Safety Report 22609060 (Version 1)
Quarter: 2023Q2

REPORT INFORMATION
  Report Type: Spontaneous
  Country: US (occurrence: None)
  Receive Date: 20230615
  Receipt Date: 20230615
  Transmission Date: 20230721
  Serious: No
  Sender: FDA-Public Use
  Company Number: None

PATIENT
  Sex: Male

DRUGS (8)
  1. ABIRATERONE [Suspect]
     Active Substance: ABIRATERONE
     Indication: Prostate cancer
     Dosage: 4T QD PO
     Route: 048
  2. ALBUTEROL [Concomitant]
  3. BENICAR [Concomitant]
     Active Substance: OLMESARTAN MEDOXOMIL
  4. CHLORTHALIDONE [Concomitant]
  5. MELOXICAM [Concomitant]
     Active Substance: MELOXICAM
  6. PENICILLIN [Concomitant]
  7. PREDNISONE [Concomitant]
  8. TRELEGY [Concomitant]

REACTIONS (2)
  - Asthenia [None]
  - Blood potassium decreased [None]
